FAERS Safety Report 23668651 (Version 1)
Quarter: 2024Q1

REPORT INFORMATION
  Report Type: Spontaneous
  Country: FR (occurrence: FR)
  Receive Date: 20240325
  Receipt Date: 20240325
  Transmission Date: 20240409
  Serious: Yes (Death, Other)
  Sender: FDA-Public Use
  Company Number: None

PATIENT
  Age: 65 Year
  Sex: Male
  Weight: 61 kg

DRUGS (12)
  1. VALIUM [Suspect]
     Active Substance: DIAZEPAM
     Indication: Behaviour disorder
     Dosage: ; IN TOTAL
     Route: 050
     Dates: start: 20240117, end: 20240117
  2. VALIUM [Suspect]
     Active Substance: DIAZEPAM
     Route: 050
     Dates: start: 20240119, end: 20240120
  3. VALIUM [Suspect]
     Active Substance: DIAZEPAM
     Dosage: ; IN TOTAL
     Route: 050
     Dates: start: 20240116, end: 20240116
  4. ZUCLOPENTHIXOL [Suspect]
     Active Substance: ZUCLOPENTHIXOL
     Indication: Behaviour disorder
     Route: 050
     Dates: start: 20240115, end: 20240116
  5. ZUCLOPENTHIXOL [Suspect]
     Active Substance: ZUCLOPENTHIXOL
     Dosage: ; IN TOTAL
     Route: 050
     Dates: start: 20240117, end: 20240117
  6. ZUCLOPENTHIXOL [Suspect]
     Active Substance: ZUCLOPENTHIXOL
     Dosage: ; IN TOTAL
     Route: 050
     Dates: start: 20240120, end: 20240120
  7. ZUCLOPENTHIXOL [Suspect]
     Active Substance: ZUCLOPENTHIXOL
     Dosage: ; IN TOTAL
     Route: 050
     Dates: start: 20240119, end: 20240119
  8. VALPROMIDE [Suspect]
     Active Substance: VALPROMIDE
     Indication: Behaviour disorder
     Route: 050
     Dates: start: 20240114, end: 20240120
  9. LOXAPINE [Suspect]
     Active Substance: LOXAPINE
     Indication: Behaviour disorder
     Dosage: ; IN TOTAL
     Route: 050
     Dates: start: 20240114, end: 20240114
  10. LOXAPINE [Suspect]
     Active Substance: LOXAPINE
     Dosage: ; IN TOTAL
     Route: 050
     Dates: start: 20240115, end: 20240115
  11. LOXAPINE [Suspect]
     Active Substance: LOXAPINE
     Dosage: ; IN TOTAL
     Route: 050
     Dates: start: 20240113, end: 20240113
  12. ZOPICLONE [Suspect]
     Active Substance: ZOPICLONE
     Indication: Sleep disorder
     Route: 050
     Dates: start: 20240114, end: 20240120

REACTIONS (6)
  - Blood creatine phosphokinase increased [Not Recovered/Not Resolved]
  - Dysarthria [Not Recovered/Not Resolved]
  - Cardio-respiratory arrest [Fatal]
  - Sedation [Fatal]
  - Fall [Recovered/Resolved]
  - Dysphagia [Not Recovered/Not Resolved]

NARRATIVE: CASE EVENT DATE: 20240118
